FAERS Safety Report 25924838 (Version 1)
Quarter: 2025Q4

REPORT INFORMATION
  Report Type: Spontaneous
  Country: GB (occurrence: GB)
  Receive Date: 20251015
  Receipt Date: 20251015
  Transmission Date: 20260117
  Serious: Yes (Hospitalization, Other)
  Sender: Kenvue
  Company Number: GB-KENVUE-20251004597

PATIENT

DRUGS (3)
  1. ACETAMINOPHEN [Interacting]
     Active Substance: ACETAMINOPHEN
     Indication: Breast pain
     Dosage: 1-1.5 GRAMS FOR A PERIOD OF TWO WEEKS
     Route: 065
     Dates: start: 20240901, end: 202409
  2. CANNABIS SATIVA SUBSP. INDICA TOP [Interacting]
     Active Substance: CANNABIS SATIVA SUBSP. INDICA TOP
     Indication: Breast pain
     Dosage: 1 MILLILITER THREE TO FOUR TIMES A DAY (14 DAYS)
     Route: 065
     Dates: start: 20240901, end: 202409
  3. FLUCLOXACILLIN [Interacting]
     Active Substance: FLUCLOXACILLIN
     Indication: Infection
     Dosage: 1 GRAM, FOUR TIME A DAY
     Route: 065
     Dates: start: 20240828, end: 20240901

REACTIONS (3)
  - Acute hepatic failure [Recovering/Resolving]
  - Renal impairment [Recovering/Resolving]
  - Drug interaction [Unknown]

NARRATIVE: CASE EVENT DATE: 20240901
